FAERS Safety Report 17582317 (Version 1)
Quarter: 2020Q1

REPORT INFORMATION
  Report Type: Spontaneous
  Country: SE (occurrence: SE)
  Receive Date: 20200325
  Receipt Date: 20200325
  Transmission Date: 20200409
  Serious: Yes (Hospitalization, Other)
  Sender: FDA-Public Use
  Company Number: SE-BAYER-2020-045702

PATIENT
  Sex: Female

DRUGS (1)
  1. LEVONORGESTREL IUS [UNKNOWN] [Suspect]
     Active Substance: LEVONORGESTREL
     Dosage: UNK
     Route: 015
     Dates: start: 20170308, end: 20170310

REACTIONS (24)
  - Insomnia [Recovered/Resolved]
  - Malaise [Recovered/Resolved]
  - Faeces discoloured [Recovered/Resolved]
  - Mental fatigue [Not Recovered/Not Resolved]
  - Disturbance in attention [Not Recovered/Not Resolved]
  - Septic shock [Recovered/Resolved with Sequelae]
  - Systemic inflammatory response syndrome [Recovered/Resolved]
  - Beta haemolytic streptococcal infection [Recovered/Resolved]
  - Bedridden [Recovered/Resolved]
  - Gait inability [Recovered/Resolved]
  - Intra-abdominal fluid collection [Recovered/Resolved]
  - Cognitive disorder [Not Recovered/Not Resolved]
  - Syncope [Recovered/Resolved]
  - Anxiety [None]
  - Memory impairment [Not Recovered/Not Resolved]
  - Peritonitis [Recovered/Resolved]
  - Discoloured vomit [Recovered/Resolved]
  - Sleep disorder [Not Recovered/Not Resolved]
  - Medical device pain [Recovered/Resolved]
  - Diarrhoea [Recovered/Resolved]
  - Abdominal pain upper [Recovered/Resolved]
  - Hyperhidrosis [Recovered/Resolved]
  - Decreased appetite [Recovered/Resolved]
  - Quality of life decreased [Not Recovered/Not Resolved]

NARRATIVE: CASE EVENT DATE: 20170309
